FAERS Safety Report 11030379 (Version 2)
Quarter: 2015Q2

REPORT INFORMATION
  Report Type: Report from Study
  Country: CL (occurrence: CL)
  Receive Date: 20150415
  Receipt Date: 20150417
  Transmission Date: 20150821
  Serious: Yes (Other)
  Sender: FDA-Public Use
  Company Number: PHHY2015CL042599

PATIENT
  Age: 43 Year
  Sex: Female
  Weight: 49 kg

DRUGS (1)
  1. LDK378 [Suspect]
     Active Substance: CERITINIB
     Indication: PRODUCT USED FOR UNKNOWN INDICATION
     Dosage: 750 MG, UNK
     Route: 048
     Dates: start: 20150122, end: 20150304

REACTIONS (5)
  - Blood alkaline phosphatase increased [Unknown]
  - Disease progression [Unknown]
  - General physical health deterioration [Unknown]
  - Vomiting [Recovered/Resolved]
  - Haemoglobin decreased [Unknown]
